FAERS Safety Report 8342076-5 (Version None)
Quarter: 2012Q2

REPORT INFORMATION
  Report Type: 
  Country: None (occurrence: None)
  Receive Date: 20120507
  Receipt Date: 20120423
  Transmission Date: 20120825
  Serious: Yes (Hospitalization)
  Sender: FDA-Public Use
  Company Number: CA-ROCHE-1064536

PATIENT
  Sex: Female

DRUGS (8)
  1. SINGULAIR [Concomitant]
  2. VENTOLIN [Concomitant]
  3. AVAPRO [Concomitant]
  4. XOLAIR [Suspect]
     Indication: ASTHMA
     Route: 058
     Dates: start: 20110912, end: 20120102
  5. SYMBICORT [Concomitant]
  6. PREDNISOLONE [Concomitant]
  7. SPIRIVA [Concomitant]
  8. PREDNISOLONE [Concomitant]

REACTIONS (3)
  - THROMBOSIS [None]
  - MIGRAINE [None]
  - ASTHMA [None]
